FAERS Safety Report 5528621-3 (Version None)
Quarter: 2007Q4

REPORT INFORMATION
  Report Type: 
  Country: None (occurrence: None)
  Receive Date: 20071109
  Receipt Date: 20070319
  Transmission Date: 20080405
  Serious: Yes (Other)
  Sender: FDA-Public Use
  Company Number: PHEH2007US03313

PATIENT
  Age: 67 Year
  Sex: Female
  Weight: 65.3 kg

DRUGS (11)
  1. ESTRADERM [Suspect]
     Indication: MENOPAUSAL SYMPTOMS
     Dosage: 0.05 MG/DAY, QW2 DAYS 1-25 OF EACH MONTH, TRANSDERMAL
     Route: 062
     Dates: start: 19970601
  2. ESTALIS COMBIPATCH(ESTRADIOL, NORETHISTERERONE ACETATE) TRANS-THERAPEU [Suspect]
     Indication: MENOPAUSAL SYMPTOMS
     Dosage: 0.05/0.14 MG/DAY, TRANSDERMAL ; 0.05/0.14 MG/DAY, TRANSDERMAL
     Route: 062
     Dates: start: 19970101, end: 19990101
  3. ESTALIS COMBIPATCH(ESTRADIOL, NORETHISTERERONE ACETATE) TRANS-THERAPEU [Suspect]
     Indication: MENOPAUSAL SYMPTOMS
     Dosage: 0.05/0.14 MG/DAY, TRANSDERMAL ; 0.05/0.14 MG/DAY, TRANSDERMAL
     Route: 062
     Dates: start: 20000601, end: 20020501
  4. PREMARIN [Suspect]
     Indication: MENOPAUSAL SYMPTOMS
     Dosage: 0.625 MG, ORAL
     Route: 048
     Dates: start: 19850101, end: 19970101
  5. PROVERA [Suspect]
     Indication: MENOPAUSAL SYMPTOMS
     Dosage: 5 MG TO 10 MG TAKEN DAYS 16-25 OF EACH MONTH, ORAL
     Route: 048
     Dates: start: 19870601, end: 19970101
  6. PREMPRO [Suspect]
     Indication: MENOPAUSAL SYMPTOMS
     Dosage: 0.625/5 MG DAILY, ORAL
     Route: 048
     Dates: start: 19990101, end: 20020101
  7. OGEN [Suspect]
     Indication: MENOPAUSAL SYMPTOMS
     Dosage: 1.25 MG, ORAL
     Route: 048
     Dates: start: 19880501, end: 19990101
  8. FELDENE [Concomitant]
  9. ACETYLSALICYLIC ACID SRT [Concomitant]
  10. CALCIUM (CALCIUM) [Concomitant]
  11. MULTIVITAMINS (ASCORBIC ACID, ERGOCALCIFEROL, FOLIC ACID, NICOTINAMIDE [Concomitant]

REACTIONS (43)
  - ABDOMINAL DISCOMFORT [None]
  - ABDOMINAL PAIN [None]
  - ARTHROSCOPY [None]
  - BACK PAIN [None]
  - BIOPSY BREAST ABNORMAL [None]
  - BODY DYSMORPHIC DISORDER [None]
  - BONE DENSITY DECREASED [None]
  - BREAST CANCER IN SITU [None]
  - BREAST OEDEMA [None]
  - BREAST TENDERNESS [None]
  - BURSITIS [None]
  - CERVICAL DYSPLASIA [None]
  - DIARRHOEA [None]
  - DIVERTICULUM [None]
  - ELECTROCARDIOGRAM ABNORMAL [None]
  - EMOTIONAL DISTRESS [None]
  - ENDOMETRIAL ATROPHY [None]
  - ENDOMETRIAL HYPERPLASIA [None]
  - EPICONDYLITIS [None]
  - ERYTHEMA [None]
  - FACE LIFT [None]
  - GASTROENTERITIS [None]
  - HAEMATOCHEZIA [None]
  - HAEMORRHOIDS [None]
  - INTERVERTEBRAL DISC DEGENERATION [None]
  - MALIGNANT BREAST LUMP REMOVAL [None]
  - MAMMOGRAM ABNORMAL [None]
  - MASTITIS [None]
  - OESTROGEN DEFICIENCY [None]
  - OSTEOARTHRITIS [None]
  - OSTEOPENIA [None]
  - PAIN IN EXTREMITY [None]
  - PATELLOFEMORAL PAIN SYNDROME [None]
  - SCIATICA [None]
  - SPINAL OSTEOARTHRITIS [None]
  - SPONDYLITIS [None]
  - TENDON SHEATH LESION EXCISION [None]
  - THROMBOPHLEBITIS [None]
  - UTERINE LEIOMYOMA [None]
  - UTERINE SPASM [None]
  - VAGINAL HAEMORRHAGE [None]
  - VARICOSE VEIN [None]
  - VARICOSE VEIN OPERATION [None]
